FAERS Safety Report 10628340 (Version 1)
Quarter: 2014Q4

REPORT INFORMATION
  Report Type: Spontaneous
  Country: US (occurrence: US)
  Receive Date: 20141205
  Receipt Date: 20141205
  Transmission Date: 20150529
  Serious: No
  Sender: FDA-Public Use
  Company Number: US-BRISTOL-MYERS SQUIBB COMPANY-21297437

PATIENT
  Age: 48 Year
  Sex: Female

DRUGS (4)
  1. SUSTIVA [Concomitant]
     Active Substance: EFAVIRENZ
  2. INVEGA [Concomitant]
     Active Substance: PALIPERIDONE
  3. INSULIN [Concomitant]
     Active Substance: INSULIN NOS
  4. ABILIFY [Suspect]
     Active Substance: ARIPIPRAZOLE
     Indication: SCHIZOPHRENIA
     Route: 048

REACTIONS (3)
  - Insomnia [Unknown]
  - Restlessness [Unknown]
  - Palpitations [Unknown]

NARRATIVE: CASE EVENT DATE: 201407
